FAERS Safety Report 5889616-3 (Version None)
Quarter: 2008Q3

REPORT INFORMATION
  Report Type: 
  Country: None (occurrence: None)
  Receive Date: 20080919
  Receipt Date: 20080917
  Transmission Date: 20090109
  Serious: Yes (Other)
  Sender: FDA-Public Use
  Company Number: B0530824A

PATIENT
  Age: 48 Year
  Sex: Female

DRUGS (5)
  1. PAXIL [Suspect]
     Indication: DEPRESSION
     Dosage: 10MG PER DAY
     Route: 048
     Dates: start: 20080701, end: 20080724
  2. PAXIL [Suspect]
     Dosage: 5MG PER DAY
     Route: 048
     Dates: start: 20080725, end: 20080729
  3. PAXIL [Suspect]
     Dosage: 10MG PER DAY
     Route: 048
     Dates: start: 20080730
  4. VOLTAREN [Concomitant]
     Route: 048
  5. MOBIC [Concomitant]
     Route: 048

REACTIONS (3)
  - BLOOD PRESSURE INCREASED [None]
  - FEELING HOT [None]
  - VISUAL IMPAIRMENT [None]
